FAERS Safety Report 20434332 (Version 5)
Quarter: 2022Q2

REPORT INFORMATION
  Report Type: Report from Study
  Country: US (occurrence: US)
  Receive Date: 20220206
  Receipt Date: 20220531
  Transmission Date: 20220720
  Serious: Yes (Hospitalization, Other)
  Sender: FDA-Public Use
  Company Number: US-NOVARTISTESTPH-NVSC2022US023110

PATIENT
  Sex: Female

DRUGS (1)
  1. PIQRAY [Suspect]
     Active Substance: ALPELISIB
     Indication: Product used for unknown indication
     Dosage: UNK
     Route: 048

REACTIONS (27)
  - Blood glucose increased [Unknown]
  - Bone cancer [Unknown]
  - Gastrooesophageal reflux disease [Unknown]
  - Nail disorder [Unknown]
  - Scab [Unknown]
  - Asthenia [Unknown]
  - Lip dry [Unknown]
  - Productive cough [Unknown]
  - Saliva altered [Unknown]
  - Glossodynia [Unknown]
  - Eating disorder [Unknown]
  - Constipation [Unknown]
  - Tongue dry [Unknown]
  - Tongue discomfort [Unknown]
  - Retching [Unknown]
  - Pain in extremity [Unknown]
  - Gait disturbance [Unknown]
  - Malaise [Unknown]
  - Pruritus [Unknown]
  - Alopecia [Unknown]
  - Ageusia [Unknown]
  - Dry skin [Unknown]
  - Decreased appetite [Unknown]
  - Weight decreased [Unknown]
  - Nausea [Unknown]
  - Rash [Unknown]
  - Hypertension [Unknown]
